FAERS Safety Report 16286327 (Version 2)
Quarter: 2019Q2

REPORT INFORMATION
  Report Type: Spontaneous
  Country: CZ (occurrence: CZ)
  Receive Date: 20190508
  Receipt Date: 20190517
  Transmission Date: 20190711
  Serious: Yes (Hospitalization, Other)
  Sender: FDA-Public Use
  Company Number: PHHY2019CZ103406

PATIENT
  Age: 70 Year
  Sex: Male

DRUGS (6)
  1. FUROSEMIDE. [Suspect]
     Active Substance: FUROSEMIDE
     Indication: HYPERTENSION
     Dosage: UNK
     Route: 040
  2. PERINDOPRIL [Suspect]
     Active Substance: PERINDOPRIL
     Indication: HYPERTENSION
     Route: 065
  3. ALLOPURINOL. [Suspect]
     Active Substance: ALLOPURINOL
     Indication: SWELLING
  4. SPIRONOLACTONE. [Suspect]
     Active Substance: SPIRONOLACTONE
     Indication: HYPERTENSION
     Route: 065
  5. TRANDOLAPRIL. [Suspect]
     Active Substance: TRANDOLAPRIL
     Indication: HYPERTENSION
     Route: 065
  6. ALLOPURINOL. [Suspect]
     Active Substance: ALLOPURINOL
     Indication: GOUTY ARTHRITIS
     Route: 065

REACTIONS (19)
  - Acute kidney injury [Unknown]
  - Hypoxia [Unknown]
  - Left ventricular hypertrophy [Unknown]
  - Polycythaemia [Unknown]
  - Discomfort [Unknown]
  - Rash [Unknown]
  - Penile swelling [Unknown]
  - Oliguria [Unknown]
  - Glomerular filtration rate decreased [Unknown]
  - Scrotal swelling [Unknown]
  - Diastolic dysfunction [Unknown]
  - Weight increased [Recovering/Resolving]
  - Dyspnoea [Unknown]
  - Right ventricular failure [Unknown]
  - Peripheral swelling [Unknown]
  - Cough [Unknown]
  - Ejection fraction decreased [Unknown]
  - Bronchitis chronic [Unknown]
  - Pulmonary hypertension [Unknown]
